FAERS Safety Report 5122535-9 (Version None)
Quarter: 2006Q4

REPORT INFORMATION
  Report Type: 
  Country: None (occurrence: None)
  Receive Date: 20061009
  Receipt Date: 20061002
  Transmission Date: 20070319
  Serious: Yes (Hospitalization)
  Sender: FDA-Public Use
  Company Number: US-SOLVAY-00206003192

PATIENT
  Age: 930 Month
  Sex: Female
  Weight: 56 kg

DRUGS (2)
  1. ESTROGENS SOL/INJ [Concomitant]
     Indication: HORMONE REPLACEMENT THERAPY
     Dosage: DAILY DOSE: .3 MILLIGRAM(S)
     Route: 048
  2. ANDROGEL [Suspect]
     Indication: ILL-DEFINED DISORDER
     Dosage: DAILY DOSE:  1/3 OF A 5 GRAM PACKET
     Route: 062
     Dates: start: 20040101

REACTIONS (3)
  - DYSPNOEA [None]
  - FOOD ALLERGY [None]
  - WEIGHT DECREASED [None]
